FAERS Safety Report 8540581-X (Version None)
Quarter: 2012Q3

REPORT INFORMATION
  Report Type: 
  Country: None (occurrence: None)
  Receive Date: 20120726
  Receipt Date: 20110801
  Transmission Date: 20120928
  Serious: No
  Sender: FDA-Public Use
  Company Number: US-ASTRAZENECA-2011SE45936

PATIENT
  Age: 90 Year
  Sex: Male

DRUGS (3)
  1. SEROQUEL [Suspect]
     Indication: DEMENTIA
     Route: 048
  2. LITHIUM CARBONATE [Concomitant]
  3. EFFEXOR [Concomitant]

REACTIONS (2)
  - PERSONALITY DISORDER [None]
  - OFF LABEL USE [None]
